FAERS Safety Report 7432012-8 (Version None)
Quarter: 2011Q2

REPORT INFORMATION
  Report Type: 
  Country: None (occurrence: None)
  Receive Date: 20110419
  Receipt Date: 20110419
  Transmission Date: 20111010
  Serious: Yes (Life-Threatening, Other)
  Sender: FDA-Public Use
  Company Number: None

PATIENT
  Sex: Female

DRUGS (1)
  1. NOVOLOG [Suspect]
     Indication: HYPERSENSITIVITY
     Dosage: 20 UNITS UNDER THE SKIN BEFORE MEALS, SQ IN ABDOMEN
     Route: 058

REACTIONS (4)
  - INJECTION SITE RASH [None]
  - PRURITUS [None]
  - INJECTION SITE URTICARIA [None]
  - PRODUCT QUALITY ISSUE [None]
